FAERS Safety Report 10745214 (Version 2)
Quarter: 2015Q2

REPORT INFORMATION
  Report Type: Spontaneous
  Country: US (occurrence: None)
  Receive Date: 20150120
  Receipt Date: 20150420
  Transmission Date: 20150821
  Serious: Yes (Other)
  Sender: FDA-Public Use
  Company Number: AEGR000913

PATIENT
  Age: 57 Year
  Sex: Male
  Weight: 88.9 kg

DRUGS (1)
  1. JUXTAPID [Suspect]
     Active Substance: LOMITAPIDE MESYLATE
     Indication: TYPE IIA HYPERLIPIDAEMIA
     Route: 048
     Dates: start: 20141112, end: 20141116

REACTIONS (5)
  - Therapy cessation [None]
  - Arrhythmia [None]
  - Pollakiuria [None]
  - Abdominal distension [None]
  - Renal pain [None]

NARRATIVE: CASE EVENT DATE: 20141113
